FAERS Safety Report 9099097 (Version 2)
Quarter: 2013Q1

REPORT INFORMATION
  Report Type: Spontaneous
  Country: FR (occurrence: FR)
  Receive Date: 20130213
  Receipt Date: 20130219
  Transmission Date: 20140127
  Serious: Yes (Hospitalization)
  Sender: FDA-Public Use
  Company Number: FR-PFIZER INC-2013053256

PATIENT
  Age: 80 Year
  Sex: Female

DRUGS (11)
  1. AMLODIPINE BESILATE [Suspect]
     Dosage: 10 MG
     Route: 048
     Dates: end: 20121106
  2. PANTOPRAZOLE [Suspect]
     Dosage: 40 MG
     Route: 048
     Dates: end: 20121106
  3. VALSARTAN [Suspect]
     Dosage: 80 MG
     Route: 048
     Dates: end: 20121106
  4. FUROSEMIDE [Suspect]
     Dosage: 80 MG
     Route: 048
     Dates: end: 20121106
  5. ATENOLOL [Suspect]
     Dosage: 100 MG
     Route: 048
     Dates: end: 20121106
  6. EUPRESSYL [Suspect]
     Dosage: 120 MG DAILY
     Route: 048
     Dates: end: 20121106
  7. DIFFU K [Suspect]
     Dosage: 3 DF
     Route: 048
     Dates: end: 20121106
  8. INSULIN DETEMIR [Suspect]
     Dosage: UNK
     Route: 058
     Dates: end: 20121106
  9. PREVISCAN [Suspect]
     Dosage: 1.5 DF
     Route: 048
     Dates: end: 20121106
  10. EZETIMIBE/SIMVASTATIN [Suspect]
     Dosage: 10 MG/40 MG, DAILY
     Route: 048
     Dates: end: 20121106
  11. LIRAGLUTIDE [Suspect]
     Dosage: 10.8 MG (1.8 ML) DAILY
     Route: 058
     Dates: end: 20121106

REACTIONS (1)
  - Cardiogenic shock [Recovered/Resolved]
